FAERS Safety Report 8510026-4 (Version None)
Quarter: 2012Q3

REPORT INFORMATION
  Report Type: 
  Country: None (occurrence: None)
  Receive Date: 20120713
  Receipt Date: 20120711
  Transmission Date: 20120928
  Serious: Yes (Death, Other)
  Sender: FDA-Public Use
  Company Number: US-MPIJNJ-2012-04875

PATIENT

DRUGS (1)
  1. VELCADE [Suspect]
     Indication: PROPHYLAXIS AGAINST TRANSPLANT REJECTION

REACTIONS (2)
  - CALCIPHYLAXIS [None]
  - ASTHENIA [None]
